FAERS Safety Report 18690389 (Version 1)
Quarter: 2021Q1

REPORT INFORMATION
  Report Type: Spontaneous
  Country: CN (occurrence: CN)
  Receive Date: 20210101
  Receipt Date: 20210101
  Transmission Date: 20210419
  Serious: Yes (Hospitalization, Other)
  Sender: FDA-Public Use
  Company Number: CN-LUPIN PHARMACEUTICALS INC.-2020-08831

PATIENT
  Age: 15 Year
  Sex: Male

DRUGS (6)
  1. BUCINNAZINE [Suspect]
     Active Substance: BUCINNAZINE
     Indication: CHEST PAIN
     Dosage: UNK (INITIAL DOSE NOT STATED)
     Route: 065
  2. MORPHINE [Suspect]
     Active Substance: MORPHINE
     Indication: CHEST PAIN
     Dosage: 200 MILLIGRAM, UNK (2 MONTHS)
     Route: 065
     Dates: start: 2006
  3. BUCINNAZINE [Suspect]
     Active Substance: BUCINNAZINE
     Dosage: 1200 MILLIGRAM, QD
     Route: 065
  4. ZOPICLONE [Suspect]
     Active Substance: ZOPICLONE
     Indication: DRUG THERAPY
     Dosage: UNK
     Route: 065
  5. ALPRAZOLAM. [Suspect]
     Active Substance: ALPRAZOLAM
     Indication: DRUG THERAPY
     Dosage: UNK
     Route: 065
  6. MORPHINE [Suspect]
     Active Substance: MORPHINE
     Dosage: UNK (STOPPED)
     Route: 065

REACTIONS (2)
  - Drug withdrawal syndrome [Unknown]
  - Drug dependence [Unknown]

NARRATIVE: CASE EVENT DATE: 2005
